FAERS Safety Report 22186079 (Version 3)
Quarter: 2023Q2

REPORT INFORMATION
  Report Type: Report from Study
  Country: CN (occurrence: CN)
  Receive Date: 20230407
  Receipt Date: 20230518
  Transmission Date: 20230722
  Serious: Yes (Hospitalization)
  Sender: FDA-Public Use
  Company Number: CN-ANTENGENE-20230301570

PATIENT
  Age: 60 Year
  Sex: Female
  Weight: 44.8 kg

DRUGS (9)
  1. SELINEXOR [Suspect]
     Active Substance: SELINEXOR
     Indication: Plasma cell myeloma
     Dosage: 100 MG, WEEKLY
     Route: 048
     Dates: start: 20220905, end: 20221003
  2. SELINEXOR [Suspect]
     Active Substance: SELINEXOR
     Dosage: 80 MG, WEEKLY
     Route: 048
     Dates: start: 20221025, end: 20221206
  3. SELINEXOR [Suspect]
     Active Substance: SELINEXOR
     Dosage: 80 MG, WEEKLY
     Route: 048
     Dates: start: 20230214, end: 20230228
  4. SELINEXOR [Suspect]
     Active Substance: SELINEXOR
     Dosage: 60 MG, WEEKLY
     Route: 048
     Dates: start: 20230307, end: 20230314
  5. BORTEZOMIB [Suspect]
     Active Substance: BORTEZOMIB
     Indication: Plasma cell myeloma
     Dosage: 1.9 MG, WEEKLY
     Route: 058
     Dates: start: 20220905, end: 20220926
  6. BORTEZOMIB [Suspect]
     Active Substance: BORTEZOMIB
     Dosage: 1.4 MG, WEEKLY
     Route: 058
     Dates: start: 20221025, end: 20221206
  7. DEXAMETHASONE [Suspect]
     Active Substance: DEXAMETHASONE
     Indication: Plasma cell myeloma
     Dosage: 20 MG, BIW
     Route: 048
     Dates: start: 20220905, end: 20221004
  8. DEXAMETHASONE [Suspect]
     Active Substance: DEXAMETHASONE
     Dosage: 12 MG, BIW
     Route: 048
     Dates: start: 20221025, end: 20221207
  9. DEXAMETHASONE [Suspect]
     Active Substance: DEXAMETHASONE
     Dosage: 12 MG, BIW
     Route: 048
     Dates: start: 20230214, end: 20230314

REACTIONS (1)
  - Peripheral nerve injury [Not Recovered/Not Resolved]

NARRATIVE: CASE EVENT DATE: 20230327
